FAERS Safety Report 16873938 (Version 23)
Quarter: 2023Q4

REPORT INFORMATION
  Report Type: Other
  Country: DE (occurrence: DE)
  Receive Date: 20191001
  Receipt Date: 20231109
  Transmission Date: 20240109
  Serious: No
  Sender: FDA-Public Use
  Company Number: DE-ROCHE-2348096

PATIENT
  Age: 51 Year
  Sex: Female

DRUGS (10)
  1. COMIRNATY (TOZINAMERAN) [Suspect]
     Active Substance: TOZINAMERAN
     Indication: COVID-19 prophylaxis
     Dosage: SECOND DOSE
     Route: 065
     Dates: start: 202108
  2. COMIRNATY (TOZINAMERAN) [Suspect]
     Active Substance: TOZINAMERAN
     Dosage: THIRD DOSE
     Route: 065
     Dates: start: 20211007
  3. OCREVUS [Suspect]
     Active Substance: OCRELIZUMAB
     Indication: Relapsing-remitting multiple sclerosis
     Route: 042
     Dates: start: 20190618
  4. OCREVUS [Suspect]
     Active Substance: OCRELIZUMAB
     Route: 042
     Dates: start: 20190702
  5. OCREVUS [Suspect]
     Active Substance: OCRELIZUMAB
     Route: 042
     Dates: start: 20200729
  6. OCREVUS [Suspect]
     Active Substance: OCRELIZUMAB
     Dosage: NEXT INFUSION ON 04/NOV/2021
     Route: 042
     Dates: start: 20210302
  7. OCREVUS [Suspect]
     Active Substance: OCRELIZUMAB
     Route: 042
     Dates: start: 20190618
  8. CHOLECALCIFEROL [Concomitant]
     Active Substance: CHOLECALCIFEROL
     Indication: Fatigue
  9. ACETAMINOPHEN [Concomitant]
     Active Substance: ACETAMINOPHEN
     Dosage: AS REQUIRED
  10. ACETAMINOPHEN [Concomitant]
     Active Substance: ACETAMINOPHEN
     Dosage: AS REQUIRED

REACTIONS (16)
  - Infection susceptibility increased [Recovered/Resolved]
  - Blood iron decreased [Recovered/Resolved]
  - COVID-19 [Not Recovered/Not Resolved]
  - White blood cell count decreased [Recovered/Resolved]
  - Fatigue [Recovering/Resolving]
  - Hormone level abnormal [Recovering/Resolving]
  - Urinary tract infection [Recovered/Resolved]
  - Lymphocyte count decreased [Recovered/Resolved]
  - Therapeutic product effect prolonged [Recovered/Resolved]
  - Nasopharyngitis [Recovered/Resolved]
  - Body temperature increased [Recovered/Resolved]
  - Vitamin D decreased [Recovered/Resolved]
  - Oligomenorrhoea [Recovering/Resolving]
  - Cardiovascular disorder [Recovered/Resolved]
  - SARS-CoV-2 antibody test negative [Recovering/Resolving]
  - Mobility decreased [Recovered/Resolved]

NARRATIVE: CASE EVENT DATE: 20190618
